FAERS Safety Report 5556318-2 (Version None)
Quarter: 2007Q4

REPORT INFORMATION
  Report Type: 
  Country: None (occurrence: None)
  Receive Date: 20071213
  Receipt Date: 20070925
  Transmission Date: 20080405
  Serious: No
  Sender: FDA-Public Use
  Company Number: US-AMGEN-KDL235347

PATIENT
  Sex: Female
  Weight: 69.9 kg

DRUGS (4)
  1. ENBREL [Suspect]
     Indication: RHEUMATOID ARTHRITIS
     Route: 058
     Dates: start: 20070119
  2. METHOTREXATE [Concomitant]
     Dates: start: 19950101
  3. PLAQUENIL [Concomitant]
     Dates: start: 20050101
  4. PREDNISONE [Concomitant]
     Dates: start: 19940101

REACTIONS (8)
  - COUGH [None]
  - INJECTION SITE DISCOLOURATION [None]
  - INJECTION SITE IRRITATION [None]
  - INJECTION SITE PAIN [None]
  - PYREXIA [None]
  - RASH [None]
  - RESPIRATORY TRACT CONGESTION [None]
  - UPPER RESPIRATORY TRACT INFECTION [None]
